FAERS Safety Report 6384399-5 (Version None)
Quarter: 2009Q3

REPORT INFORMATION
  Report Type: 
  Country: None (occurrence: None)
  Receive Date: 20090929
  Receipt Date: 20090917
  Transmission Date: 20100115
  Serious: Yes (Hospitalization)
  Sender: FDA-Public Use
  Company Number: 1000009072

PATIENT
  Age: 80 Year
  Sex: Male

DRUGS (11)
  1. CITALOPRAM HYDROBROMIDE [Suspect]
     Indication: DEPRESSION
     Dosage: 10 MG (10 MG, 1 IN 1 D), ORAL
     Route: 048
     Dates: start: 20090714, end: 20090808
  2. PLAVIX [Concomitant]
  3. FUROSEMIDE [Concomitant]
  4. IKOREL [Concomitant]
  5. CARDICOR [Concomitant]
  6. COZAAR [Concomitant]
  7. ASPIRIN [Concomitant]
  8. LIPITOR [Concomitant]
  9. ELANTAN LA [Concomitant]
  10. NEXIUM [Concomitant]
  11. TRANSDERM-NITRO [Concomitant]

REACTIONS (4)
  - AGITATION [None]
  - DYSKINESIA [None]
  - HALLUCINATION [None]
  - RESTLESSNESS [None]
